FAERS Safety Report 8395809-6 (Version None)
Quarter: 2012Q2

REPORT INFORMATION
  Report Type: 
  Country: None (occurrence: None)
  Receive Date: 20120530
  Receipt Date: 20120521
  Transmission Date: 20120825
  Serious: Yes (Other)
  Sender: FDA-Public Use
  Company Number: JP-US-EMD SERONO, INC.-7134230

PATIENT
  Age: 38 Year
  Sex: Female

DRUGS (3)
  1. GANIREST [Concomitant]
     Indication: PRODUCT USED FOR UNKNOWN INDICATION
     Dates: start: 20120518
  2. HMG [Concomitant]
     Indication: PRODUCT USED FOR UNKNOWN INDICATION
     Dates: start: 20120518
  3. GONAL-F [Suspect]
     Indication: INFERTILITY
     Route: 058
     Dates: start: 20120512, end: 20120516

REACTIONS (1)
  - RASH GENERALISED [None]
